FAERS Safety Report 9941943 (Version 2)
Quarter: 2014Q1

REPORT INFORMATION
  Report Type: Report from Study
  Country: US (occurrence: US)
  Receive Date: 20140303
  Receipt Date: 20140303
  Transmission Date: 20141002
  Serious: No
  Sender: FDA-Public Use
  Company Number: US-ABBVIE-13P-163-1037806-00

PATIENT
  Age: 25 Year
  Sex: Female
  Weight: 69.01 kg

DRUGS (5)
  1. HUMIRA [Suspect]
     Indication: RHEUMATOID ARTHRITIS
     Route: 058
     Dates: start: 201210
  2. METHOTREXATE [Concomitant]
     Indication: RHEUMATOID ARTHRITIS
  3. FOLIC ACID [Concomitant]
     Indication: VITAMIN SUPPLEMENTATION
  4. ASPIRIN [Concomitant]
     Indication: PRODUCT USED FOR UNKNOWN INDICATION
  5. MULTIVITAMINS [Concomitant]
     Indication: SUPPLEMENTATION THERAPY

REACTIONS (3)
  - Rhinorrhoea [Recovering/Resolving]
  - Nasal congestion [Recovering/Resolving]
  - Sinusitis [Not Recovered/Not Resolved]
